FAERS Safety Report 8339729-1 (Version None)
Quarter: 2012Q2

REPORT INFORMATION
  Report Type: 
  Country: None (occurrence: None)
  Receive Date: 20120507
  Receipt Date: 20120425
  Transmission Date: 20120825
  Serious: Yes (Other)
  Sender: FDA-Public Use
  Company Number: CH-TEVA-336101ISR

PATIENT
  Sex: Female

DRUGS (1)
  1. VENLAFAXINE-MEPHA ER 75 MG [Suspect]
     Route: 048

REACTIONS (1)
  - RETINAL DETACHMENT [None]
